FAERS Safety Report 7828857-2 (Version None)
Quarter: 2011Q4

REPORT INFORMATION
  Report Type: 
  Country: None (occurrence: None)
  Receive Date: 20111020
  Receipt Date: 20111017
  Transmission Date: 20120403
  Serious: Yes (Death, Other)
  Sender: FDA-Public Use
  Company Number: CHPA2011US14329

PATIENT
  Age: 84 Year
  Sex: Male

DRUGS (1)
  1. PERDIEM OVERNIGHT RELIEF PILLS [Suspect]
     Indication: CONSTIPATION
     Dosage: 1 OR 2, QD
     Route: 048

REACTIONS (6)
  - GENERAL PHYSICAL HEALTH DETERIORATION [None]
  - UNDERDOSE [None]
  - DYSPHAGIA [None]
  - PARKINSON'S DISEASE [None]
  - INCORRECT DRUG ADMINISTRATION DURATION [None]
  - CORONARY ARTERY DISEASE [None]
